FAERS Safety Report 6759053-8 (Version None)
Quarter: 2010Q2

REPORT INFORMATION
  Report Type: 
  Country: None (occurrence: None)
  Receive Date: 20100602
  Receipt Date: 20100517
  Transmission Date: 20101027
  Serious: Yes (Death, Life-Threatening, Hospitalization)
  Sender: FDA-Public Use
  Company Number: GER/USA/10/0013264

PATIENT
  Age: 5 Year
  Sex: Male

DRUGS (2)
  1. ONDANSETRON [Suspect]
     Indication: ABDOMINAL PAIN
     Dosage: 2 MG, 1 IN 1 TOTAL, SUBLINGUAL/ONCE
     Route: 060
  2. ONDANSETRON [Suspect]
     Indication: VOMITING
     Dosage: 2 MG, 1 IN 1 TOTAL, SUBLINGUAL/ONCE
     Route: 060

REACTIONS (10)
  - BRONCHOPNEUMONIA [None]
  - CARDIAC ARREST [None]
  - DRUG INEFFECTIVE [None]
  - ENTEROVIRUS TEST POSITIVE [None]
  - HEPATIC INFECTION BACTERIAL [None]
  - HYPERTHERMIA [None]
  - LYMPHADENOPATHY [None]
  - MUSCLE RIGIDITY [None]
  - THROMBOSIS [None]
  - VENTRICULAR TACHYCARDIA [None]
